FAERS Safety Report 6081278-8 (Version None)
Quarter: 2009Q1

REPORT INFORMATION
  Report Type: 
  Country: None (occurrence: None)
  Receive Date: 20090213
  Receipt Date: 20090202
  Transmission Date: 20090719
  Serious: Yes (Hospitalization)
  Sender: FDA-Public Use
  Company Number: KV200900151

PATIENT
  Age: 79 Year
  Sex: Male
  Weight: 72.6 kg

DRUGS (5)
  1. ISOSORBIDE MONONITRATE [Suspect]
     Indication: ARTERIAL OCCLUSIVE DISEASE
     Dosage: 60 MG, QD, ORAL
     Route: 048
  2. LIPITOR [Concomitant]
  3. METOPROLOL [Concomitant]
  4. ASPIRIN [Concomitant]
  5. AVALIDE [Concomitant]

REACTIONS (2)
  - CEREBROVASCULAR ACCIDENT [None]
  - PRODUCT QUALITY ISSUE [None]
